FAERS Safety Report 14294588 (Version 3)
Quarter: 2018Q1

REPORT INFORMATION
  Report Type: Spontaneous
  Country: AT (occurrence: AT)
  Receive Date: 20171218
  Receipt Date: 20180115
  Transmission Date: 20180509
  Serious: Yes (Other)
  Sender: FDA-Public Use
  Company Number: AT-BIOGEN-2017BI00495422

PATIENT
  Age: 27 Year
  Sex: Female

DRUGS (4)
  1. PEGINTERFERON BETA-1A [Concomitant]
     Active Substance: PEGINTERFERON BETA-1A
     Indication: PRODUCT USED FOR UNKNOWN INDICATION
     Route: 065
  2. TYSABRI [Suspect]
     Active Substance: NATALIZUMAB
     Indication: PRODUCT USED FOR UNKNOWN INDICATION
     Route: 042
  3. GILENYA [Concomitant]
     Active Substance: FINGOLIMOD HYDROCHLORIDE
     Indication: MULTIPLE SCLEROSIS
     Dosage: QD
     Route: 065
     Dates: start: 20131129, end: 20131130
  4. OCULOTECT [Concomitant]
     Indication: OPTIC ATROPHY
     Dosage: UNK
     Route: 065
     Dates: start: 20131129

REACTIONS (13)
  - Strabismus [Unknown]
  - Eye pain [Recovered/Resolved]
  - Macular oedema [Unknown]
  - Depression [Unknown]
  - Bradycardia [Recovered/Resolved]
  - Chest discomfort [Recovered/Resolved]
  - Oral herpes [Unknown]
  - Hypoacusis [Recovered/Resolved]
  - Influenza like illness [Recovered/Resolved]
  - Haemoglobin decreased [Unknown]
  - Blood glucose decreased [Unknown]
  - Aspartate aminotransferase increased [Unknown]
  - Nasopharyngitis [Recovered/Resolved]

NARRATIVE: CASE EVENT DATE: 20131129
